FAERS Safety Report 8357507-4 (Version None)
Quarter: 2012Q2

REPORT INFORMATION
  Report Type: 
  Country: None (occurrence: None)
  Receive Date: 20120511
  Receipt Date: 20120427
  Transmission Date: 20120825
  Serious: Yes (Other)
  Sender: FDA-Public Use
  Company Number: JP-2012-15112

PATIENT
  Age: 55 Year
  Sex: Female
  Weight: 82 kg

DRUGS (9)
  1. MYOCOR (GLYCERYL TRINITRATE) [Concomitant]
  2. BLOPRESS (CANDESARTAN CILEXETIL) [Concomitant]
  3. FUROSEMIDE (FUROSEMIDE SODIUM) [Concomitant]
  4. NORVASC [Concomitant]
  5. SAMSCA [Suspect]
     Indication: FLUID RETENTION
     Dosage: 7.5 MG MILLIGRAM(S), QAM, ORAL ; 15 MG MILLIGRAM(S), QAM, ORAL
     Route: 048
     Dates: start: 20120202, end: 20120203
  6. SAMSCA [Suspect]
     Indication: FLUID RETENTION
     Dosage: 7.5 MG MILLIGRAM(S), QAM, ORAL ; 15 MG MILLIGRAM(S), QAM, ORAL
     Route: 048
     Dates: start: 20120204, end: 20120215
  7. HANP (CARPERITIDE) [Concomitant]
  8. UNISIA (CANDESARTAN CILEXETIL AMLODIPINE) [Concomitant]
  9. ISOSORBIDE DINITRATE [Concomitant]

REACTIONS (2)
  - INFLUENZA [None]
  - BLOOD UREA INCREASED [None]
